FAERS Safety Report 6014354-6 (Version None)
Quarter: 2008Q4

REPORT INFORMATION
  Report Type: 
  Country: None (occurrence: None)
  Receive Date: 20081219
  Receipt Date: 20080609
  Transmission Date: 20090506
  Serious: No
  Sender: FDA-Public Use
  Company Number: A0726092A

PATIENT
  Age: 74 Year
  Sex: Male
  Weight: 69.1 kg

DRUGS (4)
  1. AVODART [Suspect]
     Indication: BENIGN PROSTATIC HYPERPLASIA
     Dosage: .5MG ALTERNATE DAYS
     Route: 048
     Dates: start: 20070401
  2. FLOMAX [Concomitant]
  3. SIMVASTATIN [Concomitant]
  4. ANTICOAGULANT [Concomitant]

REACTIONS (6)
  - BREAST SWELLING [None]
  - BREAST TENDERNESS [None]
  - DISCOMFORT [None]
  - GYNAECOMASTIA [None]
  - PHYSICAL TESTICLE EXAMINATION ABNORMAL [None]
  - SWELLING [None]
